FAERS Safety Report 4949670-X (Version None)
Quarter: 2006Q1

REPORT INFORMATION
  Report Type: 
  Country: None (occurrence: None)
  Receive Date: 20060316
  Receipt Date: 20060303
  Transmission Date: 20060701
  Serious: Yes (Disabling, Other)
  Sender: FDA-Public Use
  Company Number: USA-2006-0023748

PATIENT
  Age: 21 Year
  Sex: Female

DRUGS (1)
  1. OXYCONTIN [Suspect]
     Indication: PAIN
     Dosage: 640 MG, DAILY

REACTIONS (6)
  - ACTIVITIES OF DAILY LIVING IMPAIRED [None]
  - DRUG DEPENDENCE [None]
  - FEAR [None]
  - GASTRIC CANCER [None]
  - HIV TEST POSITIVE [None]
  - TERMINAL STATE [None]
